FAERS Safety Report 9626981 (Version 2)
Quarter: 2013Q4

REPORT INFORMATION
  Report Type: Spontaneous
  Country: JP (occurrence: JP)
  Receive Date: 20131016
  Receipt Date: 20131121
  Transmission Date: 20140711
  Serious: Yes (Other)
  Sender: FDA-Public Use
  Company Number: PHHY2013JP114698

PATIENT
  Age: 47 Year
  Sex: Female

DRUGS (3)
  1. GLIVEC [Suspect]
     Indication: ACUTE LYMPHOCYTIC LEUKAEMIA
     Dosage: 600 MG, PER DAY
     Route: 048
  2. GLIVEC [Interacting]
     Dosage: 400 MG, PER DAY
     Route: 048
  3. ITRACONAZOLE [Interacting]
     Dosage: UNK UKN, UNK

REACTIONS (5)
  - Ileus [Recovering/Resolving]
  - Hepatic function abnormal [Recovering/Resolving]
  - Oedema [Recovering/Resolving]
  - Nausea [Recovering/Resolving]
  - Drug interaction [Unknown]
